FAERS Safety Report 8126325-4 (Version None)
Quarter: 2012Q1

REPORT INFORMATION
  Report Type: 
  Country: None (occurrence: None)
  Receive Date: 20120209
  Receipt Date: 20120203
  Transmission Date: 20120608
  Serious: Yes (Hospitalization)
  Sender: FDA-Public Use
  Company Number: BE-ROCHE-1022110

PATIENT
  Sex: Male
  Weight: 47.6 kg

DRUGS (10)
  1. ACTEMRA [Suspect]
     Indication: JUVENILE ARTHRITIS
     Route: 042
     Dates: start: 20090204
  2. ZYRTEC [Concomitant]
     Dates: start: 20090204
  3. ACETAMINOPHEN [Concomitant]
     Dosage: TDD PRN
     Dates: start: 20080110
  4. OMEPRAZOLE [Concomitant]
     Dates: start: 20100503
  5. ACTEMRA [Suspect]
     Indication: JUVENILE ARTHRITIS
     Dosage: DATE OF LAST DOSE PRIOR TO SAE 14 DEC 2011, TEMPORARILY INTERUPTED.
     Route: 042
     Dates: end: 20111214
  6. NAPROSYN [Concomitant]
     Dates: start: 20110715
  7. D-CURE [Concomitant]
     Dates: start: 20071210
  8. ATARAX [Concomitant]
     Dosage: TDD PRN
     Dates: start: 20110608
  9. SOMATROPIN RDNA [Concomitant]
     Dates: start: 20100527
  10. CALCIUM CARBONATE [Concomitant]
     Dates: start: 20071210

REACTIONS (1)
  - HISTIOCYTOSIS HAEMATOPHAGIC [None]
